FAERS Safety Report 10890775 (Version 3)
Quarter: 2015Q2

REPORT INFORMATION
  Report Type: Spontaneous
  Country: US (occurrence: US)
  Receive Date: 20150305
  Receipt Date: 20150429
  Transmission Date: 20150821
  Serious: Yes (Other)
  Sender: FDA-Public Use
  Company Number: US-GLENMARK GENERICS INC.-2015GMK014259

PATIENT

DRUGS (1)
  1. ALYACEN 1/35 [Suspect]
     Active Substance: ETHINYL ESTRADIOL\NORETHINDRONE
     Indication: CONTRACEPTION
     Dosage: 1 DF, HS
     Route: 048
     Dates: start: 201410, end: 201411

REACTIONS (3)
  - Pregnancy on oral contraceptive [Unknown]
  - Drug ineffective [Unknown]
  - Product substitution issue [Unknown]

NARRATIVE: CASE EVENT DATE: 201410
